FAERS Safety Report 8292332-4 (Version None)
Quarter: 2012Q2

REPORT INFORMATION
  Report Type: 
  Country: None (occurrence: None)
  Receive Date: 20120417
  Receipt Date: 20120404
  Transmission Date: 20120825
  Serious: Yes (Other)
  Sender: FDA-Public Use
  Company Number: US-CELGENEUS-163-21880-11120199

PATIENT
  Sex: Male
  Weight: 79.904 kg

DRUGS (14)
  1. VALACYCLOVIR [Concomitant]
     Route: 065
  2. LISINOPRIL [Concomitant]
     Route: 065
  3. PERCOCET [Concomitant]
     Indication: PAIN
     Dosage: 1-2 TABS
     Route: 048
  4. LISINOPRIL AND HYDROCHLOROTHIAZIDE [Concomitant]
     Dosage: 20/25MG
     Route: 065
  5. ASPIRIN [Concomitant]
     Dosage: 325 MILLIGRAM
     Route: 065
     Dates: start: 20111101
  6. OMEPRAZOLE [Concomitant]
     Dosage: 20 MILLIGRAM
     Route: 065
  7. VITAMIN D [Concomitant]
     Route: 065
  8. ZOMETA [Concomitant]
     Route: 065
  9. ASPIRIN [Concomitant]
     Route: 065
  10. METOPROLOL TARTRATE [Concomitant]
     Dosage: 100 MILLIGRAM
     Route: 065
  11. BENADRYL [Concomitant]
     Route: 065
  12. REVLIMID [Suspect]
     Indication: MULTIPLE MYELOMA
     Dosage: 25 MILLIGRAM
     Route: 048
     Dates: start: 20111118, end: 20111128
  13. OXYCODONE HCL [Concomitant]
     Route: 065
  14. HYDROCHLOROTHIAZIDE [Concomitant]
     Route: 065

REACTIONS (4)
  - OPTIC NEUROPATHY [None]
  - RETINAL VASCULAR OCCLUSION [None]
  - CEREBRAL INFARCTION [None]
  - HAEMOGLOBIN DECREASED [None]
